FAERS Safety Report 21327148 (Version 2)
Quarter: 2022Q4

REPORT INFORMATION
  Report Type: Spontaneous
  Country: PT (occurrence: PT)
  Receive Date: 20220913
  Receipt Date: 20221021
  Transmission Date: 20230112
  Serious: Yes (Other)
  Sender: FDA-Public Use
  Company Number: None

PATIENT
  Age: 56 Year
  Sex: Female

DRUGS (2)
  1. KISQALI [Suspect]
     Active Substance: RIBOCICLIB
     Indication: Breast cancer metastatic
     Dosage: 600 MG (CICLOS DE 600MG (3 CP. POR DIA) 1XDIA DURANTE 21 DIAS CONSECUTIVOS SEGUIDOS DE 7 DIAS SEM TR
     Route: 048
     Dates: start: 20220224
  2. LETROZOLE [Concomitant]
     Active Substance: LETROZOLE
     Indication: Breast cancer metastatic
     Dosage: UNK
     Route: 048
     Dates: start: 202102

REACTIONS (6)
  - Eye irritation [Unknown]
  - Eye pain [Unknown]
  - Visual acuity reduced [Unknown]
  - Asthenopia [Unknown]
  - Condition aggravated [Unknown]
  - Lacrimation increased [Unknown]

NARRATIVE: CASE EVENT DATE: 20220201
